FAERS Safety Report 7533479-7 (Version None)
Quarter: 2011Q2

REPORT INFORMATION
  Report Type: 
  Country: None (occurrence: None)
  Receive Date: 20110608
  Receipt Date: 20051214
  Transmission Date: 20111010
  Serious: Yes (Death)
  Sender: FDA-Public Use
  Company Number: PHHO2005NZ19491

PATIENT
  Sex: Female

DRUGS (12)
  1. CLOZAPINE [Suspect]
     Indication: SCHIZOPHRENIA
     Dates: start: 20040405
  2. COLOXYL [Concomitant]
  3. OSTEO [Concomitant]
     Dosage: UNK, QD
  4. OMEPRAZOLE [Concomitant]
     Dosage: 20 MG, QD
  5. SYMBICORT [Concomitant]
  6. COMBIVENT [Concomitant]
  7. PAROXETINE HCL [Concomitant]
     Dosage: 20 MG, UNK
  8. FUROSEMIDE [Concomitant]
     Dosage: 40 MG, UNK
  9. ASPIRIN [Concomitant]
     Dosage: 150 MG, QD
  10. LACTULOSE [Concomitant]
  11. SLOW-K [Concomitant]
  12. ISOSORBIDE MONONITRATE [Concomitant]
     Dosage: 60 MG, QD

REACTIONS (1)
  - DEATH [None]
